FAERS Safety Report 17349143 (Version 1)
Quarter: 2020Q1

REPORT INFORMATION
  Report Type: Report from Study
  Country: US (occurrence: US)
  Receive Date: 20200129
  Receipt Date: 20200129
  Transmission Date: 20200409
  Serious: No
  Sender: FDA-Public Use
  Company Number: US-EXELIXIS-CABO-19025101

PATIENT
  Sex: Female

DRUGS (2)
  1. CABOMETYX [Suspect]
     Active Substance: CABOZANTINIB S-MALATE
     Indication: RENAL CANCER
     Dosage: 60 MG (8PM NO FOOD 2 HRS PRIOR AND 1 HR AFTER)
     Dates: start: 20191027
  2. CABOMETYX [Suspect]
     Active Substance: CABOZANTINIB S-MALATE
     Indication: METASTASES TO LUNG

REACTIONS (5)
  - Pulmonary mass [Unknown]
  - Appetite disorder [Unknown]
  - Diarrhoea [Unknown]
  - Myalgia [Unknown]
  - Fatigue [Unknown]
